FAERS Safety Report 9931192 (Version 1)
Quarter: 2014Q1

REPORT INFORMATION
  Report Type: Report from Study
  Country: US (occurrence: US)
  Receive Date: 20140228
  Receipt Date: 20140228
  Transmission Date: 20141002
  Serious: Yes (Death)
  Sender: FDA-Public Use
  Company Number: US-ROCHE-1331055

PATIENT
  Age: 59 Year
  Sex: Male
  Weight: 84.44 kg

DRUGS (14)
  1. AVASTIN [Suspect]
     Indication: COLON CANCER METASTATIC
     Dosage: 1270 MG, OVER 90 MINUTES
     Route: 042
  2. KYTRIL [Suspect]
     Indication: COLON CANCER METASTATIC
     Route: 042
  3. DECADRON [Concomitant]
     Route: 065
  4. OXYCONTIN [Concomitant]
     Route: 048
  5. ALEVE [Concomitant]
     Route: 065
  6. AMBIEN [Concomitant]
     Dosage: HS
     Route: 065
  7. ALOXI [Concomitant]
     Route: 042
  8. LEUCOVORIN [Concomitant]
     Route: 042
  9. 5-FU [Concomitant]
     Route: 042
  10. BENADRYL (UNITED STATES) [Concomitant]
     Route: 065
  11. ZANTAC [Concomitant]
     Route: 065
  12. ATROPINE [Concomitant]
     Route: 042
  13. LEXAPRO [Concomitant]
     Indication: DEPRESSION
     Route: 065
  14. OXYCODONE [Concomitant]
     Indication: BREAKTHROUGH PAIN
     Route: 065

REACTIONS (9)
  - Disease progression [Fatal]
  - Overdose [Unknown]
  - Hypoaesthesia [Unknown]
  - Fatigue [Unknown]
  - Musculoskeletal discomfort [Unknown]
  - Constipation [Unknown]
  - Depression [Unknown]
  - Muscle spasms [Recovered/Resolved]
  - Feeling of despair [Unknown]
